FAERS Safety Report 8842593 (Version 2)
Quarter: 2012Q4

REPORT INFORMATION
  Report Type: Report from Study
  Country: NL (occurrence: NL)
  Receive Date: 20121016
  Receipt Date: 20121028
  Transmission Date: 20130627
  Serious: Yes (Hospitalization)
  Sender: FDA-Public Use
  Company Number: NL-CELGENEUS-114-20785-12101076

PATIENT
  Age: 64 Year
  Sex: Male
  Weight: 79 kg

DRUGS (3)
  1. THALIDOMIDE CELGENE [Suspect]
     Indication: MULTIPLE MYELOMA
     Dosage: 1x200mg
     Route: 048
     Dates: start: 20120913, end: 20121004
  2. MELPHALAN [Suspect]
     Indication: MULTIPLE MYELOMA
     Route: 048
     Dates: start: 20120913, end: 20120916
  3. PREDNISONE [Suspect]
     Indication: MULTIPLE MYELOMA
     Route: 048
     Dates: start: 20120913, end: 20120916

REACTIONS (1)
  - Lung infiltration [Recovered/Resolved]
